FAERS Safety Report 9208640 (Version 1)
Quarter: 2013Q2

REPORT INFORMATION
  Report Type: Spontaneous
  Country: PT (occurrence: US)
  Receive Date: 20130404
  Receipt Date: 20130404
  Transmission Date: 20140414
  Serious: Yes (Death)
  Sender: FDA-Public Use
  Company Number: US-PFIZER INC-2013102014

PATIENT
  Sex: 0

DRUGS (2)
  1. BENZYLPENICILLIN POTASSIUM [Suspect]
     Indication: STREPTOCOCCAL INFECTION
     Dosage: UNK
     Route: 064
  2. LEVOTHYROXINE [Concomitant]
     Indication: HYPOTHYROIDISM
     Dosage: UNK
     Route: 064

REACTIONS (2)
  - Maternal exposure during pregnancy [Fatal]
  - Asphyxia [Fatal]
